FAERS Safety Report 4442299-1 (Version None)
Quarter: 2004Q3

REPORT INFORMATION
  Report Type: 
  Country: None (occurrence: None)
  Receive Date: 20040903
  Receipt Date: 20040715
  Transmission Date: 20050211
  Serious: Yes (Other)
  Sender: FDA-Public Use
  Company Number: 2004UW14704

PATIENT
  Sex: Female

DRUGS (1)
  1. CRESTOR [Suspect]

REACTIONS (6)
  - ARTHRALGIA [None]
  - BODY TEMPERATURE INCREASED [None]
  - HEADACHE [None]
  - MUSCLE SPASMS [None]
  - NAUSEA [None]
  - VISION BLURRED [None]
